FAERS Safety Report 9761385 (Version 2)
Quarter: 2014Q2

REPORT INFORMATION
  Report Type: Spontaneous
  Country: US (occurrence: US)
  Receive Date: 20131216
  Receipt Date: 20140430
  Transmission Date: 20141212
  Serious: No
  Sender: FDA-Public Use
  Company Number: US-PFIZER INC-2013354239

PATIENT
  Age: 67 Year
  Sex: Female

DRUGS (2)
  1. XALKORI [Suspect]
     Dosage: 200 MG, 2X/DAY
     Route: 048
     Dates: start: 20130814
  2. XALKORI [Suspect]
     Dosage: 200 MG, 2X/DAY

REACTIONS (2)
  - Peripheral swelling [Unknown]
  - Swelling face [Unknown]
